FAERS Safety Report 4707995-7 (Version None)
Quarter: 2005Q3

REPORT INFORMATION
  Report Type: 
  Country: None (occurrence: None)
  Receive Date: 20050707
  Receipt Date: 20050622
  Transmission Date: 20060218
  Serious: Yes (Death, Hospitalization, Other)
  Sender: FDA-Public Use
  Company Number: PHBS2005JP09025

PATIENT
  Age: 81 Year
  Sex: Male

DRUGS (4)
  1. GASTER [Concomitant]
     Route: 048
  2. MELPHALAN [Concomitant]
     Route: 065
  3. PREDNISOLONE [Concomitant]
     Route: 065
  4. AREDIA [Suspect]
     Indication: MULTIPLE MYELOMA
     Dosage: 45 MG, QMO
     Route: 042

REACTIONS (6)
  - ASEPTIC NECROSIS BONE [None]
  - DENTAL CARIES [None]
  - DENTAL TREATMENT [None]
  - MALIGNANT NEOPLASM PROGRESSION [None]
  - MULTIPLE MYELOMA [None]
  - OSTECTOMY [None]
